FAERS Safety Report 7629954-7 (Version None)
Quarter: 2011Q3

REPORT INFORMATION
  Report Type: 
  Country: None (occurrence: None)
  Receive Date: 20110722
  Receipt Date: 20110721
  Transmission Date: 20111222
  Serious: Yes (Other)
  Sender: FDA-Public Use
  Company Number: US-PFIZER INC-2011166227

PATIENT
  Sex: Female
  Weight: 78 kg

DRUGS (6)
  1. CHANTIX [Suspect]
     Dosage: 1 MG, 2X/DAY
     Dates: start: 20110101, end: 20110701
  2. REYATAZ [Concomitant]
     Dosage: UNK
  3. CHANTIX [Suspect]
     Indication: SMOKING CESSATION THERAPY
     Dosage: 0.5 MG, 1X/DAY
     Dates: start: 20110201, end: 20110101
  4. METFORMIN [Concomitant]
     Indication: DIABETES MELLITUS
     Dosage: UNK
  5. NORVIR [Concomitant]
     Dosage: UNK
  6. TRAZODONE [Concomitant]
     Dosage: UNK

REACTIONS (2)
  - CONVULSION [None]
  - ALOPECIA [None]
